FAERS Safety Report 7656569-7 (Version None)
Quarter: 2011Q3

REPORT INFORMATION
  Report Type: 
  Country: None (occurrence: None)
  Receive Date: 20110804
  Receipt Date: 20110314
  Transmission Date: 20111222
  Serious: No
  Sender: FDA-Public Use
  Company Number: US-BAUSCH-2011BL001592

PATIENT
  Age: 78 Year
  Sex: Female

DRUGS (4)
  1. BETIMOL [Concomitant]
     Indication: GLAUCOMA
     Route: 047
  2. OPCON-A [Suspect]
     Indication: EYE ALLERGY
     Route: 047
     Dates: start: 20090101
  3. REFRESH [Concomitant]
     Indication: DRY EYE
     Route: 047
  4. XALATAN /SWE/ [Concomitant]
     Indication: GLAUCOMA
     Route: 047

REACTIONS (2)
  - EYE IRRITATION [None]
  - LACRIMATION INCREASED [None]
